FAERS Safety Report 16682460 (Version 1)
Quarter: 2019Q3

REPORT INFORMATION
  Report Type: Spontaneous
  Country: DE (occurrence: DE)
  Receive Date: 20190808
  Receipt Date: 20190808
  Transmission Date: 20191004
  Serious: Yes (Other)
  Sender: FDA-Public Use
  Company Number: DE-ROCHE-2370167

PATIENT
  Age: 19 Year
  Sex: Male

DRUGS (1)
  1. RITUXIMAB. [Suspect]
     Active Substance: RITUXIMAB
     Indication: ENCEPHALITIS AUTOIMMUNE
     Route: 065

REACTIONS (10)
  - Otorrhoea [Unknown]
  - Ear pain [Unknown]
  - C-reactive protein increased [Unknown]
  - Wound dehiscence [Unknown]
  - Leukocytosis [Unknown]
  - Otitis media acute [Unknown]
  - Erythema [Unknown]
  - Off label use [Unknown]
  - Intentional product use issue [Unknown]
  - Deafness [Unknown]
